FAERS Safety Report 25154444 (Version 3)
Quarter: 2025Q2

REPORT INFORMATION
  Report Type: Spontaneous
  Country: JP (occurrence: JP)
  Receive Date: 20250403
  Receipt Date: 20250526
  Transmission Date: 20250717
  Serious: Yes (Other)
  Sender: REGENERON
  Company Number: JP-BAYER-2025A045049

PATIENT
  Age: 8 Decade
  Sex: Male

DRUGS (2)
  1. EYLEA HD [Suspect]
     Active Substance: AFLIBERCEPT
     Indication: Age-related macular degeneration
     Dosage: 8 MG, Q2MON, RIGHT EYE (PATIENT TREATED ON BOTH EYES), SOLUTION FOR INJECTION, 114.3 MG/ML
     Route: 031
     Dates: start: 20240802, end: 20250207
  2. EYLEA HD [Suspect]
     Active Substance: AFLIBERCEPT
     Dosage: 8 MG, Q2MON, LEFT EYE, SOLUTION FOR INJECTION, 114.3 MG/ML
     Route: 031
     Dates: start: 20240816, end: 20250307

REACTIONS (3)
  - Blindness transient [Recovered/Resolved]
  - Blindness transient [Recovered/Resolved]
  - Carotid arteriosclerosis [Not Recovered/Not Resolved]

NARRATIVE: CASE EVENT DATE: 20250110
